FAERS Safety Report 7258309-2 (Version None)
Quarter: 2011Q1

REPORT INFORMATION
  Report Type: 
  Country: None (occurrence: None)
  Receive Date: 20110129
  Receipt Date: 20100720
  Transmission Date: 20110831
  Serious: No
  Sender: FDA-Public Use
  Company Number: US-ABBOTT-10P-163-0660462-00

PATIENT
  Sex: Female
  Weight: 90.8 kg

DRUGS (5)
  1. EVOXAC [Concomitant]
     Indication: SJOGREN'S SYNDROME
  2. TRIAMTERENE AND HYDROCHLOROTHIAZIDE [Concomitant]
     Indication: HYPERTENSION
  3. HUMIRA [Suspect]
     Indication: RHEUMATOID ARTHRITIS
     Dates: start: 20080101, end: 20100201
  4. HUMIRA [Suspect]
     Dates: start: 20100601
  5. ATENOLOL [Concomitant]
     Indication: HYPERTENSION

REACTIONS (9)
  - SPLINTER HAEMORRHAGES [None]
  - SLEEP APNOEA SYNDROME [None]
  - JOINT SWELLING [None]
  - PALPITATIONS [None]
  - NODULE [None]
  - DYSPNOEA [None]
  - RHEUMATOID ARTHRITIS [None]
  - FATIGUE [None]
  - HAEMOGLOBIN DECREASED [None]
